FAERS Safety Report 19537085 (Version 3)
Quarter: 2021Q3

REPORT INFORMATION
  Report Type: Spontaneous
  Country: US (occurrence: US)
  Receive Date: 20210713
  Receipt Date: 20210907
  Transmission Date: 20211014
  Serious: Yes (Hospitalization, Other)
  Sender: FDA-Public Use
  Company Number: US-ASTRAZENECA-2021A611710

PATIENT
  Age: 61 Year
  Sex: Female
  Weight: 81.4 kg

DRUGS (10)
  1. CRESTOR [Suspect]
     Active Substance: ROSUVASTATIN CALCIUM
     Indication: PRODUCT USED FOR UNKNOWN INDICATION
     Route: 048
  2. ENTRESTO [Concomitant]
     Active Substance: SACUBITRIL\VALSARTAN
  3. SELEXIPAG [Suspect]
     Active Substance: SELEXIPAG
     Indication: PULMONARY ARTERIAL HYPERTENSION
     Route: 048
  4. AMBRISENTAN [Suspect]
     Active Substance: AMBRISENTAN
     Route: 065
  5. SELEXIPAG [Suspect]
     Active Substance: SELEXIPAG
     Indication: PULMONARY ARTERIAL HYPERTENSION
     Route: 048
  6. SPIRIVA [Suspect]
     Active Substance: TIOTROPIUM BROMIDE MONOHYDRATE
     Route: 065
  7. SILDENAFIL CITRATE. [Suspect]
     Active Substance: SILDENAFIL CITRATE
     Route: 065
  8. SELEXIPAG [Suspect]
     Active Substance: SELEXIPAG
     Indication: PULMONARY ARTERIAL HYPERTENSION
     Route: 048
     Dates: start: 20210701
  9. WARFARIN [Concomitant]
     Active Substance: WARFARIN
  10. TORSEMIDE. [Suspect]
     Active Substance: TORSEMIDE
     Route: 065

REACTIONS (33)
  - Dyspnoea [Recovering/Resolving]
  - Fatigue [Recovering/Resolving]
  - Cardiac failure [Not Recovered/Not Resolved]
  - Arterial occlusive disease [Not Recovered/Not Resolved]
  - Uterine leiomyoma [Not Recovered/Not Resolved]
  - Illness [Recovering/Resolving]
  - Abdominal distension [Not Recovered/Not Resolved]
  - Anxiety [Not Recovered/Not Resolved]
  - Depression [Not Recovered/Not Resolved]
  - Muscular weakness [Not Recovered/Not Resolved]
  - Cyanosis [Unknown]
  - Gait disturbance [Recovering/Resolving]
  - Dizziness [Unknown]
  - Weight increased [Not Recovered/Not Resolved]
  - Anaemia [Unknown]
  - Blood magnesium decreased [Unknown]
  - Oxygen saturation decreased [Unknown]
  - Blood potassium abnormal [Unknown]
  - Cardiac valve disease [Not Recovered/Not Resolved]
  - Bladder mass [Not Recovered/Not Resolved]
  - Limb discomfort [Unknown]
  - Heart rate increased [Unknown]
  - COVID-19 [Not Recovered/Not Resolved]
  - Myalgia [Unknown]
  - Therapy change [Recovering/Resolving]
  - Cardiac disorder [Unknown]
  - Gait inability [Not Recovered/Not Resolved]
  - Heart rate decreased [Unknown]
  - Palpitations [Unknown]
  - Lung disorder [Unknown]
  - Balance disorder [Unknown]
  - Peripheral swelling [Unknown]
  - Malaise [Not Recovered/Not Resolved]

NARRATIVE: CASE EVENT DATE: 202106
